FAERS Safety Report 16861476 (Version 1)
Quarter: 2019Q3

REPORT INFORMATION
  Report Type: Report from Study
  Country: GB (occurrence: GB)
  Receive Date: 20190927
  Receipt Date: 20190927
  Transmission Date: 20191005
  Serious: Yes (Other)
  Sender: FDA-Public Use
  Company Number: GB-MYLANLABS-2019M1089220

PATIENT
  Age: 49 Year
  Sex: Female

DRUGS (20)
  1. TRASTUZUMAB. [Suspect]
     Active Substance: TRASTUZUMAB
     Indication: BREAST CANCER METASTATIC
     Dosage: 525 MILLIGRAM, LOADING DOSE
     Route: 042
     Dates: start: 20150904, end: 20150904
  2. BUDESONIDE. [Concomitant]
     Active Substance: BUDESONIDE
     Dosage: 400 MICROGRAM, QD
     Route: 065
  3. PERTUZUMAB. [Suspect]
     Active Substance: PERTUZUMAB
     Indication: BREAST CANCER METASTATIC
     Dosage: 840 MILLIGRAM, LOADING DOSE
     Route: 042
     Dates: start: 20150904
  4. PERTUZUMAB. [Suspect]
     Active Substance: PERTUZUMAB
     Dosage: 420 MILLIGRAM, 3XW, MAINTENANCE DOSE
     Route: 042
     Dates: start: 20150925
  5. DOCETAXEL. [Suspect]
     Active Substance: DOCETAXEL
     Indication: BREAST CANCER METASTATIC
     Dosage: 100 MILLIGRAM, 3XW
     Route: 042
     Dates: start: 20151113, end: 20160104
  6. SENOKOT [Concomitant]
     Active Substance: SENNOSIDES
     Dosage: UNK, 3XMONTHS
     Route: 048
     Dates: start: 201512, end: 201603
  7. DOCUSATE SODIUM. [Concomitant]
     Active Substance: DOCUSATE SODIUM
     Indication: CONSTIPATION
     Dosage: 100 MILLIGRAM
     Route: 048
  8. INSTILLAGEL [Concomitant]
     Active Substance: CHLORHEXIDINE GLUCONATE\LIDOCAINE HYDROCHLORIDE
     Dosage: 6 MILLILITER
     Route: 058
     Dates: start: 20160426
  9. DEXAMETHASONE. [Concomitant]
     Active Substance: DEXAMETHASONE
     Dosage: BID FOR 3 DAYS AFTER EACH DOCETAXEL
     Route: 048
     Dates: start: 20150902, end: 20160106
  10. UNIROID [Concomitant]
     Dosage: UNK
     Route: 050
     Dates: start: 201603
  11. TRASTUZUMAB. [Suspect]
     Active Substance: TRASTUZUMAB
     Dosage: 399 MILLIGRAM, 3XW, MAINTENANCE DOSE
     Route: 042
     Dates: start: 20150925
  12. DOCETAXEL. [Suspect]
     Active Substance: DOCETAXEL
     Dosage: 130 MILLIGRAM, 3XW, DOSE MODIFIED
     Route: 042
     Dates: start: 20150904, end: 20151016
  13. SCHERIPROCT NEO [Concomitant]
     Dosage: 2 UNKNOWN UNIT, QD, 1 APPLICATION
     Route: 061
     Dates: start: 201512
  14. ZOLEDRONIC ACID [Concomitant]
     Active Substance: ZOLEDRONIC ACID
     Indication: METASTASES TO BONE
     Dosage: 4 MILLIGRAM, 3XW
     Route: 042
     Dates: start: 20160129
  15. FILGRASTIM [Concomitant]
     Active Substance: FILGRASTIM
     Dosage: ONCE DAILY, FOR 7 DAYS AFTER DOCETEXAL
     Route: 058
     Dates: start: 20150904, end: 20160110
  16. TAMOXIFEN [Suspect]
     Active Substance: TAMOXIFEN
     Indication: BREAST CANCER METASTATIC
     Dosage: 20 MILLIGRAM, QD
     Route: 048
     Dates: start: 20160420
  17. LANSOPRAZOLE. [Concomitant]
     Active Substance: LANSOPRAZOLE
     Dosage: 15 MILLIGRAM, QD
     Route: 048
     Dates: start: 201509
  18. BUSCOPAN [Concomitant]
     Active Substance: BUTYLSCOPOLAMINE BROMIDE
     Dosage: 10 MILLIGRAM, QD
     Route: 048
     Dates: start: 201601, end: 201601
  19. IMODIUM [Concomitant]
     Active Substance: LOPERAMIDE HYDROCHLORIDE
     Dosage: 2 MILLIGRAM, 3XMONTHS
     Route: 048
     Dates: start: 201512, end: 201603
  20. TERBUTALINE [Concomitant]
     Active Substance: TERBUTALINE
     Dosage: 500 MICROGRAM
     Route: 065

REACTIONS (5)
  - Cellulitis [Recovered/Resolved]
  - Lethargy [Recovered/Resolved]
  - Myalgia [Recovered/Resolved]
  - Neutrophil count decreased [Recovered/Resolved]
  - Nausea [Recovered/Resolved]

NARRATIVE: CASE EVENT DATE: 201603
